FAERS Safety Report 8231663-0 (Version None)
Quarter: 2012Q1

REPORT INFORMATION
  Report Type: 
  Country: None (occurrence: None)
  Receive Date: 20120323
  Receipt Date: 20120314
  Transmission Date: 20120608
  Serious: Yes (Hospitalization)
  Sender: FDA-Public Use
  Company Number: GB-PFIZER INC-2012007868

PATIENT
  Age: 69 Year
  Sex: Female

DRUGS (6)
  1. NITROFURANTOIN [Concomitant]
     Indication: URINARY TRACT INFECTION
     Dosage: 50 MG, 4X/DAY
     Dates: start: 20111209
  2. CELECOXIB [Suspect]
     Indication: OSTEOARTHRITIS
     Dosage: 100 MG, 2X/DAY
     Route: 048
     Dates: start: 20101221
  3. IRBESARTAN [Concomitant]
     Dosage: 300 MG, 1X/DAY
  4. TAMOXIFEN [Concomitant]
     Indication: BREAST CANCER
     Dosage: 20 MG, 1X/DAY
     Dates: start: 20110506
  5. ACETAMINOPHEN AND CODEINE PHOSPHATE [Concomitant]
     Dosage: UNK
  6. TRIMETHOPRIM [Concomitant]
     Indication: URINARY TRACT INFECTION
     Dosage: 200 MG, 2X/DAY
     Dates: start: 20111123

REACTIONS (1)
  - UROSEPSIS [None]
